FAERS Safety Report 4619537-5 (Version None)
Quarter: 2005Q2

REPORT INFORMATION
  Report Type: 
  Country: None (occurrence: None)
  Receive Date: 20050321
  Receipt Date: 20040722
  Transmission Date: 20051028
  Serious: Yes (Other)
  Sender: FDA-Public Use
  Company Number: 2004-07-1192

PATIENT
  Age: 42 Year
  Sex: Male
  Weight: 83.9154 kg

DRUGS (2)
  1. PEG-INTRON [Suspect]
     Indication: HEPATITIS C
     Dosage: 150 MCG QW SUBCUTANEOUS
     Route: 058
     Dates: start: 20020912
  2. REBETOL [Suspect]
     Indication: HEPATITIS C
     Dosage: 800 MG QD
     Dates: start: 20020912

REACTIONS (8)
  - AFFECT LABILITY [None]
  - ANOREXIA [None]
  - HAEMATOCHEZIA [None]
  - INFREQUENT BOWEL MOVEMENTS [None]
  - INSOMNIA [None]
  - SUICIDAL IDEATION [None]
  - VOMITING [None]
  - WEIGHT DECREASED [None]
